FAERS Safety Report 12624082 (Version 2)
Quarter: 2016Q3

REPORT INFORMATION
  Report Type: Spontaneous
  Country: DE (occurrence: DE)
  Receive Date: 20160804
  Receipt Date: 20160812
  Transmission Date: 20161109
  Serious: Yes (Other)
  Sender: FDA-Public Use
  Company Number: DE-ROCHE-1808869

PATIENT
  Age: 35 Year
  Sex: Male
  Weight: 81 kg

DRUGS (4)
  1. CELECOXIB. [Concomitant]
     Active Substance: CELECOXIB
     Indication: PAIN
     Route: 048
  2. LAMOTRIGIN [Concomitant]
     Active Substance: LAMOTRIGINE
     Indication: EPILEPSY
     Route: 048
  3. AVASTIN [Suspect]
     Active Substance: BEVACIZUMAB
     Indication: GLIOBLASTOMA
     Route: 042
     Dates: start: 201503, end: 20160530
  4. LEVETIRACETAM. [Concomitant]
     Active Substance: LEVETIRACETAM
     Indication: EPILEPSY
     Route: 048

REACTIONS (2)
  - Pericardial effusion [Recovering/Resolving]
  - Oedema peripheral [Recovering/Resolving]

NARRATIVE: CASE EVENT DATE: 20160620
